FAERS Safety Report 5542406-3 (Version None)
Quarter: 2007Q4

REPORT INFORMATION
  Report Type: 
  Country: None (occurrence: None)
  Receive Date: 20071123
  Receipt Date: 20070924
  Transmission Date: 20080405
  Serious: Yes (Other)
  Sender: FDA-Public Use
  Company Number: US-JNJFOC-20070905136

PATIENT
  Age: 61 Year
  Sex: Female
  Weight: 61.2356 kg

DRUGS (1)
  1. LEVAQUIN [Suspect]
     Indication: SINUSITIS
     Dosage: 250 MG, 2 IN 1 DAY, ORAL
     Route: 048
     Dates: start: 20070726, end: 20070731

REACTIONS (3)
  - BLOOD GLUCOSE INCREASED [None]
  - MUSCULOSKELETAL PAIN [None]
  - PAIN [None]
